FAERS Safety Report 5899550-0 (Version None)
Quarter: 2008Q3

REPORT INFORMATION
  Report Type: 
  Country: None (occurrence: None)
  Receive Date: 20080925
  Receipt Date: 20080925
  Transmission Date: 20090109
  Serious: No
  Sender: FDA-Public Use
  Company Number: None

PATIENT
  Sex: Female
  Weight: 57.3 kg

DRUGS (3)
  1. CARBOPLATIN [Suspect]
     Dosage: 653 MG
     Dates: end: 20080903
  2. TAXOTERE [Suspect]
     Dosage: 116 MG
     Dates: end: 20080903
  3. TAXOL [Suspect]
     Dosage: 93  MG
     Dates: end: 20080910

REACTIONS (1)
  - NEUTROPHIL COUNT DECREASED [None]
